FAERS Safety Report 6840501-X (Version None)
Quarter: 2010Q3

REPORT INFORMATION
  Report Type: 
  Country: None (occurrence: None)
  Receive Date: 20100714
  Receipt Date: 20100706
  Transmission Date: 20110219
  Serious: Yes (Other)
  Sender: FDA-Public Use
  Company Number: A0868660A

PATIENT
  Age: 64 Year
  Sex: Male

DRUGS (4)
  1. LOVAZA [Suspect]
     Indication: BLOOD TRIGLYCERIDES INCREASED
     Dosage: 4G UNKNOWN
     Route: 048
     Dates: start: 20100625, end: 20100701
  2. CRESTOR [Concomitant]
  3. ASPIRIN [Concomitant]
  4. NORVASC [Concomitant]

REACTIONS (1)
  - ERYTHEMA MULTIFORME [None]
